FAERS Safety Report 6656408-7 (Version None)
Quarter: 2010Q1

REPORT INFORMATION
  Report Type: 
  Country: None (occurrence: None)
  Receive Date: 20100329
  Receipt Date: 20100326
  Transmission Date: 20100710
  Serious: Yes (Death, Hospitalization)
  Sender: FDA-Public Use
  Company Number: US-ROCHE-693485

PATIENT
  Age: 71 Year
  Sex: Male
  Weight: 98.6 kg

DRUGS (1)
  1. CAPECITABINE [Suspect]
     Indication: COLORECTAL CANCER
     Dosage: TOTAL DOSE: 92400 MG
     Route: 048
     Dates: start: 20080915, end: 20081022

REACTIONS (1)
  - GASTROINTESTINAL FISTULA [None]
